FAERS Safety Report 14441541 (Version 1)
Quarter: 2018Q1

REPORT INFORMATION
  Report Type: Spontaneous
  Country: US (occurrence: US)
  Receive Date: 20180125
  Receipt Date: 20180125
  Transmission Date: 20180509
  Serious: Yes (Other)
  Sender: FDA-Public Use
  Company Number: US-BAYER-2018-016548

PATIENT
  Age: 23 Year
  Sex: Female

DRUGS (2)
  1. MIRENA [Suspect]
     Active Substance: LEVONORGESTREL
     Dosage: 20 MCG/24HR, CONT
     Route: 015
     Dates: start: 20150414, end: 20160430
  2. MIRENA [Suspect]
     Active Substance: LEVONORGESTREL

REACTIONS (2)
  - Genital haemorrhage [None]
  - Abdominal pain lower [None]

NARRATIVE: CASE EVENT DATE: 20150430
